FAERS Safety Report 12987666 (Version 1)
Quarter: 2016Q4

REPORT INFORMATION
  Report Type: Spontaneous
  Country: US (occurrence: US)
  Receive Date: 20161130
  Receipt Date: 20161130
  Transmission Date: 20170207
  Serious: No
  Sender: FDA-Public Use
  Company Number: US-BAYER-2016-224999

PATIENT
  Age: 8 Year
  Sex: Female

DRUGS (3)
  1. SORAFENIB (RAF KINASE INHIBITOR) [Suspect]
     Active Substance: SORAFENIB
     Indication: HEPATOCELLULAR CARCINOMA
  2. CISPLATIN. [Concomitant]
     Active Substance: CISPLATIN
     Indication: HEPATOCELLULAR CARCINOMA
  3. DOXORUBICIN [Concomitant]
     Active Substance: DOXORUBICIN
     Indication: HEPATOCELLULAR CARCINOMA

REACTIONS (2)
  - Product use issue [None]
  - Drug intolerance [None]
